FAERS Safety Report 23969042 (Version 1)
Quarter: 2024Q2

REPORT INFORMATION
  Report Type: Spontaneous
  Country: US (occurrence: US)
  Receive Date: 20240612
  Receipt Date: 20240612
  Transmission Date: 20240716
  Serious: No
  Sender: FDA-Public Use
  Company Number: US-RIGEL Pharmaceuticals, INC-2024FOS000112

PATIENT
  Sex: Female

DRUGS (2)
  1. TAVALISSE [Suspect]
     Active Substance: FOSTAMATINIB
     Indication: Product used for unknown indication
     Dosage: 150 MG, BID
     Route: 048
     Dates: start: 20231202
  2. DEXAMETHASONE [Concomitant]
     Active Substance: DEXAMETHASONE
     Indication: Product used for unknown indication
     Dosage: UNK

REACTIONS (10)
  - Anaemia [Unknown]
  - Contusion [Unknown]
  - Asthenia [Unknown]
  - Vitamin B complex deficiency [Unknown]
  - Alopecia [Unknown]
  - Swelling face [Unknown]
  - Swelling [Unknown]
  - Weight increased [Unknown]
  - Product dose omission issue [Unknown]
  - Fatigue [Unknown]
